FAERS Safety Report 7877602-3 (Version None)
Quarter: 2011Q4

REPORT INFORMATION
  Report Type: 
  Country: None (occurrence: None)
  Receive Date: 20111031
  Receipt Date: 20111021
  Transmission Date: 20120403
  Serious: Yes (Other)
  Sender: FDA-Public Use
  Company Number: US-ASTRAZENECA-2011SE00788

PATIENT
  Age: 89 Year
  Sex: Female

DRUGS (5)
  1. ASST. VITAMINS [Concomitant]
  2. OMEPRAZOLE [Suspect]
     Route: 048
  3. TRIAMTERENE [Concomitant]
  4. SYNTHROID [Concomitant]
  5. NEXIUM [Suspect]
     Indication: GASTROOESOPHAGEAL REFLUX DISEASE
     Route: 048

REACTIONS (5)
  - CONVULSION [None]
  - INCORRECT DOSE ADMINISTERED [None]
  - GASTROOESOPHAGEAL REFLUX DISEASE [None]
  - DRUG DOSE OMISSION [None]
  - MALAISE [None]
